FAERS Safety Report 15136403 (Version 1)
Quarter: 2018Q3

REPORT INFORMATION
  Report Type: Spontaneous
  Country: US (occurrence: US)
  Receive Date: 20180712
  Receipt Date: 20180712
  Transmission Date: 20181010
  Serious: No
  Sender: FDA-Public Use
  Company Number: US-PFIZER INC-2017296536

PATIENT
  Age: 19 Year
  Sex: Male

DRUGS (1)
  1. BENEFIX [Suspect]
     Active Substance: COAGULATION FACTOR IX RECOMBINANT HUMAN\ISOPROPYL ALCOHOL
     Indication: FACTOR IX DEFICIENCY
     Dosage: UNK UNK, AS NEEDED (MONTHLY DOSAGE: 15,000 IU (5000 IU +/? 1070, Q12?24 PRN; (3 DOSES) 15,000))
     Route: 042

REACTIONS (2)
  - Arthralgia [Unknown]
  - Joint injury [Unknown]
